FAERS Safety Report 5318118-8 (Version None)
Quarter: 2007Q2

REPORT INFORMATION
  Report Type: 
  Country: None (occurrence: None)
  Receive Date: 20070507
  Receipt Date: 20070426
  Transmission Date: 20071010
  Serious: Yes (Hospitalization)
  Sender: FDA-Public Use
  Company Number: JP-ROCHE-494552

PATIENT
  Age: 20 Year
  Sex: Female
  Weight: 61 kg

DRUGS (4)
  1. ROCEPHIN [Suspect]
     Indication: OTITIS MEDIA ACUTE
     Route: 041
     Dates: start: 20070413, end: 20070413
  2. VOLTAREN [Suspect]
     Indication: EAR PAIN
     Dosage: DOSE FORM REPORTED AS RECTAL SUPPOSITORY AND ROUTE REPORTED AS ORAL.
     Route: 054
     Dates: start: 20070413, end: 20070413
  3. MEIACT [Suspect]
     Indication: DRUG USE FOR UNKNOWN INDICATION
     Route: 048
  4. TARIVID [Concomitant]
     Dosage: DOSE FORM REPORTED AS DROPS (EAR CANAL) AND ROUTE REPORTED AS AURICULAR.
     Route: 001
     Dates: start: 20070412, end: 20070418

REACTIONS (1)
  - ANAPHYLACTIC REACTION [None]
